FAERS Safety Report 5053449-0 (Version None)
Quarter: 2006Q3

REPORT INFORMATION
  Report Type: 
  Country: None (occurrence: None)
  Receive Date: 20060712
  Receipt Date: 20060706
  Transmission Date: 20061208
  Serious: Yes (Hospitalization)
  Sender: FDA-Public Use
  Company Number: USA-2006-0024567

PATIENT
  Age: 1 Year
  Sex: Female

DRUGS (2)
  1. CEFDITOREN PIVOXIL (SIMILAR TO NDA 21-222)(CELDITOREN PIVOXIL) OTHER [Suspect]
     Indication: PHARYNGITIS
     Dosage: ORAL
     Route: 048
     Dates: start: 20060626, end: 20060630
  2. BIOFERMIN R (STREPTOCOCCUS FAECALIS) [Concomitant]

REACTIONS (1)
  - AGRANULOCYTOSIS [None]
